FAERS Safety Report 13523011 (Version 5)
Quarter: 2019Q2

REPORT INFORMATION
  Report Type: Spontaneous
  Country: US (occurrence: US)
  Receive Date: 20170508
  Receipt Date: 20190613
  Transmission Date: 20190711
  Serious: No
  Sender: FDA-Public Use
  Company Number: US-VIFOR (INTERNATIONAL) INC.-VIT-2017-00851

PATIENT
  Age: 63 Year
  Sex: Male
  Weight: 95.2 kg

DRUGS (24)
  1. VELTASSA [Suspect]
     Active Substance: PATIROMER
     Dosage: ONE PACKET IN 3 OZ OF WATER
     Route: 048
     Dates: start: 20160707
  2. LANTUS [Concomitant]
     Active Substance: INSULIN GLARGINE
  3. LOSARTAN. [Concomitant]
     Active Substance: LOSARTAN
  4. MIRAPEX [Concomitant]
     Active Substance: PRAMIPEXOLE DIHYDROCHLORIDE
  5. PROCARDIA XL [Concomitant]
     Active Substance: NIFEDIPINE
  6. METOPROLOL TARTRATE. [Concomitant]
     Active Substance: METOPROLOL TARTRATE
  7. VELTASSA [Suspect]
     Active Substance: PATIROMER
     Dosage: POWDER DISSOLVED IN 1/3 CUP OF WATER
     Route: 048
     Dates: start: 20160805
  8. VELTASSA [Suspect]
     Active Substance: PATIROMER
     Route: 048
     Dates: start: 20180508
  9. ALPRAZOLAM. [Concomitant]
     Active Substance: ALPRAZOLAM
  10. DULOXETINE. [Concomitant]
     Active Substance: DULOXETINE
  11. VITAMIN D3 [Concomitant]
     Active Substance: CHOLECALCIFEROL
  12. VELTASSA [Suspect]
     Active Substance: PATIROMER
     Indication: HYPERKALAEMIA
     Dosage: ONE PACKET IN 3 OZ OF WATER
     Route: 048
     Dates: start: 20160815
  13. FLOMAX [Concomitant]
     Active Substance: TAMSULOSIN HYDROCHLORIDE
  14. LOVAZA [Concomitant]
     Active Substance: OMEGA-3-ACID ETHYL ESTERS
  15. NORCO [Concomitant]
     Active Substance: ACETAMINOPHEN\HYDROCODONE BITARTRATE
  16. NOVOLOG [Concomitant]
     Active Substance: INSULIN ASPART
  17. RENALTABS [Concomitant]
  18. VELTASSA [Suspect]
     Active Substance: PATIROMER
     Route: 048
  19. AMLODIPINE [Concomitant]
     Active Substance: AMLODIPINE BESYLATE
  20. ZETIA [Concomitant]
     Active Substance: EZETIMIBE
  21. COENZYME Q10 [Concomitant]
     Active Substance: UBIDECARENONE
  22. CRANBERRY TAB [Concomitant]
  23. VICTOZA [Concomitant]
     Active Substance: LIRAGLUTIDE
  24. PRILOSEC [Concomitant]
     Active Substance: OMEPRAZOLE MAGNESIUM

REACTIONS (9)
  - Dyspepsia [Not Recovered/Not Resolved]
  - Constipation [Not Recovered/Not Resolved]
  - Pyrexia [Not Recovered/Not Resolved]
  - Vomiting [Not Recovered/Not Resolved]
  - Abdominal pain [Not Recovered/Not Resolved]
  - Influenza [Not Recovered/Not Resolved]
  - Diarrhoea [Not Recovered/Not Resolved]
  - Flatulence [Not Recovered/Not Resolved]
  - Off label use [Not Recovered/Not Resolved]

NARRATIVE: CASE EVENT DATE: 201701
